FAERS Safety Report 15940328 (Version 2)
Quarter: 2019Q1

REPORT INFORMATION
  Report Type: Spontaneous
  Country: CZ (occurrence: CZ)
  Receive Date: 20190208
  Receipt Date: 20190314
  Transmission Date: 20190417
  Serious: Yes (Other)
  Sender: FDA-Public Use
  Company Number: CZ-009507513-1901CZE011692

PATIENT
  Age: 79 Year
  Sex: Male
  Weight: 71 kg

DRUGS (6)
  1. JANUMET [Suspect]
     Active Substance: METFORMIN HYDROCHLORIDE\SITAGLIPTIN PHOSPHATE
     Dosage: 100 MILLIGRAM
     Route: 048
  2. PERINDOPRIL [Concomitant]
     Active Substance: PERINDOPRIL
     Indication: HYPERTENSION
     Dosage: UNK UNK, UNK
     Route: 048
     Dates: start: 2002
  3. LANTUS [Suspect]
     Active Substance: INSULIN GLARGINE
     Dosage: 22 IU, QD
     Route: 058
     Dates: start: 201708, end: 201809
  4. LANTUS [Suspect]
     Active Substance: INSULIN GLARGINE
     Dosage: 14 U, UNK
  5. ATORVASTATIN [Concomitant]
     Active Substance: ATORVASTATIN
     Indication: HYPERLIPIDAEMIA
     Dosage: UNK UNK, BID
     Route: 048
     Dates: start: 2004
  6. LANTUS [Suspect]
     Active Substance: INSULIN GLARGINE
     Dosage: 26 INTERNATIONAL UNIT, QD
     Route: 058

REACTIONS (2)
  - Diabetes mellitus [Recovering/Resolving]
  - Constipation [Unknown]
